FAERS Safety Report 24363796 (Version 1)
Quarter: 2024Q3

REPORT INFORMATION
  Report Type: Spontaneous
  Country: CN (occurrence: CN)
  Receive Date: 20240925
  Receipt Date: 20240925
  Transmission Date: 20241017
  Serious: Yes (Hospitalization, Other)
  Sender: PFIZER
  Company Number: CN-PFIZER INC-PV202400123589

PATIENT
  Age: 18 Year
  Sex: Female
  Weight: 40.7 kg

DRUGS (6)
  1. DIFLUCAN [Suspect]
     Active Substance: FLUCONAZOLE
     Indication: Vulvovaginal candidiasis
     Dosage: 150 MG, 1X/DAY
     Route: 048
     Dates: start: 20240917, end: 20240917
  2. DIFLUCAN [Suspect]
     Active Substance: FLUCONAZOLE
     Indication: Bacterial vulvovaginitis
  3. CHLORHEXIDINE\CLOTRIMAZOLE\METRONIDAZOLE [Suspect]
     Active Substance: CHLORHEXIDINE\CLOTRIMAZOLE\METRONIDAZOLE
     Indication: Vulvovaginal candidiasis
     Dosage: 1 DF, 1X/DAY
     Route: 067
     Dates: start: 20240917, end: 20240917
  4. CHLORHEXIDINE\CLOTRIMAZOLE\METRONIDAZOLE [Suspect]
     Active Substance: CHLORHEXIDINE\CLOTRIMAZOLE\METRONIDAZOLE
     Indication: Bacterial vulvovaginitis
  5. METRONIDAZOLE [Suspect]
     Active Substance: METRONIDAZOLE
     Indication: Vulvovaginal candidiasis
     Dosage: 0.4 G, 2X/DAY
     Route: 048
     Dates: start: 20240917, end: 20240917
  6. METRONIDAZOLE [Suspect]
     Active Substance: METRONIDAZOLE
     Indication: Bacterial vulvovaginitis

REACTIONS (5)
  - Rash [Recovered/Resolved]
  - Pruritus [Recovered/Resolved]
  - Face oedema [Recovered/Resolved]
  - Urticaria [Recovered/Resolved]
  - Erythema [Recovered/Resolved]

NARRATIVE: CASE EVENT DATE: 20240917
